FAERS Safety Report 14142657 (Version 1)
Quarter: 2017Q4

REPORT INFORMATION
  Report Type: Spontaneous
  Country: JP (occurrence: JP)
  Receive Date: 20171030
  Receipt Date: 20171030
  Transmission Date: 20180321
  Serious: Yes (Other)
  Sender: FDA-Public Use
  Company Number: JP-PFIZER INC-2017466673

PATIENT
  Sex: Female

DRUGS (1)
  1. ESTRACYT [Suspect]
     Active Substance: ESTRAMUSTINE PHOSPHATE SODIUM
     Dosage: 156.7 MG, UNK
     Route: 065

REACTIONS (4)
  - Second primary malignancy [Unknown]
  - Leukaemia [Unknown]
  - Liver abscess [Unknown]
  - Thyroid cancer [Unknown]
